FAERS Safety Report 7608682-8 (Version None)
Quarter: 2011Q3

REPORT INFORMATION
  Report Type: 
  Country: None (occurrence: None)
  Receive Date: 20110714
  Receipt Date: 20110630
  Transmission Date: 20111222
  Serious: Yes (Hospitalization)
  Sender: FDA-Public Use
  Company Number: NL-CELGENEUS-114-20785-10090547

PATIENT
  Sex: Female
  Weight: 62 kg

DRUGS (11)
  1. PREDNISONE [Suspect]
     Indication: MULTIPLE MYELOMA
     Dosage: 120 MILLIGRAM
     Route: 048
     Dates: start: 20100828, end: 20100831
  2. FENTANYL [Concomitant]
     Indication: PAIN
     Dosage: 2400 MICROGRAM
     Route: 062
     Dates: start: 20100401, end: 20100913
  3. MELPHALAN HYDROCHLORIDE [Suspect]
     Indication: MULTIPLE MYELOMA
     Dosage: 12 MILLIGRAM
     Route: 048
     Dates: start: 20100828, end: 20100831
  4. METOCLOPRAMIDE [Concomitant]
     Indication: NAUSEA
     Dosage: 30 MILLIGRAM
     Route: 048
     Dates: start: 20100601, end: 20100904
  5. FLUVOXAMINE [Concomitant]
     Indication: PROPHYLAXIS
     Route: 048
     Dates: start: 20100701, end: 20100904
  6. THALIDOMIDE [Suspect]
     Dosage: 200 MILLIGRAM
     Route: 048
     Dates: start: 20100914, end: 20100921
  7. FENTANYL [Concomitant]
     Dosage: 1200 MICROGRAM
     Route: 062
  8. THALIDOMIDE [Suspect]
     Indication: MULTIPLE MYELOMA
     Dosage: 200 MILLIGRAM
     Route: 048
     Dates: start: 20100828, end: 20100904
  9. HALOPERIDOL [Concomitant]
     Indication: DELIRIUM
  10. DIAZEPAM [Concomitant]
     Indication: ANXIETY
     Route: 048
     Dates: start: 20100801, end: 20100904
  11. HALOPERIDOL [Concomitant]
     Indication: ANXIETY
     Route: 048
     Dates: start: 20100801, end: 20100904

REACTIONS (5)
  - SOMNOLENCE [None]
  - ANXIETY [None]
  - PNEUMONIA ASPIRATION [None]
  - PYREXIA [None]
  - DELIRIUM [None]
